FAERS Safety Report 6899010-4 (Version None)
Quarter: 2010Q3

REPORT INFORMATION
  Report Type: 
  Country: None (occurrence: None)
  Receive Date: 20100802
  Receipt Date: 20071225
  Transmission Date: 20110219
  Serious: No
  Sender: FDA-Public Use
  Company Number: US-PFIZER INC-2007108063

PATIENT
  Sex: Female
  Weight: 113.63 kg

DRUGS (3)
  1. LYRICA [Suspect]
     Indication: BACK PAIN
     Dates: start: 20070401
  2. DILAUDID [Concomitant]
     Indication: BACK PAIN
  3. PERCOCET [Concomitant]
     Indication: BACK PAIN

REACTIONS (3)
  - FLUID RETENTION [None]
  - OEDEMA PERIPHERAL [None]
  - SOMNOLENCE [None]
